FAERS Safety Report 4973008-5 (Version None)
Quarter: 2006Q2

REPORT INFORMATION
  Report Type: 
  Country: None (occurrence: None)
  Receive Date: 20060410
  Receipt Date: 20060331
  Transmission Date: 20061013
  Serious: Yes (Hospitalization, Other)
  Sender: FDA-Public Use
  Company Number: 2006045083

PATIENT
  Age: 87 Year
  Sex: Female
  Weight: 70.3075 kg

DRUGS (5)
  1. TIKOSYN [Suspect]
     Indication: ATRIAL FIBRILLATION
     Dosage: 1000 MCG (500 MCG, BID INTERVAL:  EVERY DAY)
  2. BENICAR [Concomitant]
  3. ACIPHEX [Concomitant]
  4. ASPIRIN [Concomitant]
  5. DIGOXIN [Concomitant]

REACTIONS (4)
  - CALCINOSIS [None]
  - EYE DISORDER [None]
  - GLOSSODYNIA [None]
  - LOSS OF CONSCIOUSNESS [None]
